FAERS Safety Report 10422293 (Version 2)
Quarter: 2014Q3

REPORT INFORMATION
  Report Type: Spontaneous
  Country: BA (occurrence: BA)
  Receive Date: 20140901
  Receipt Date: 20140915
  Transmission Date: 20150326
  Serious: Yes (Life-Threatening)
  Sender: FDA-Public Use
  Company Number: BA-ASTRAZENECA-2014SE64986

PATIENT
  Age: 795 Month
  Sex: Female
  Weight: 69 kg

DRUGS (5)
  1. HEMOPRES [Concomitant]
  2. NIFELAT [Concomitant]
     Active Substance: ATENOLOL\NIFEDIPINE
  3. CRESTOR [Suspect]
     Active Substance: ROSUVASTATIN CALCIUM
     Indication: HYPERLIPIDAEMIA
     Route: 048
     Dates: start: 20140202, end: 20140222
  4. LETROX [Concomitant]
  5. PRESOLOL [Concomitant]

REACTIONS (1)
  - Choking [Recovered/Resolved]

NARRATIVE: CASE EVENT DATE: 201402
